FAERS Safety Report 6903317-1 (Version None)
Quarter: 2010Q3

REPORT INFORMATION
  Report Type: 
  Country: None (occurrence: None)
  Receive Date: 20100803
  Receipt Date: 20080915
  Transmission Date: 20110219
  Serious: No
  Sender: FDA-Public Use
  Company Number: US-PFIZER INC-2008078278

PATIENT
  Sex: Female
  Weight: 54.5 kg

DRUGS (3)
  1. LYRICA [Suspect]
     Indication: PARAESTHESIA
     Route: 048
     Dates: start: 20080101
  2. ATACAND [Concomitant]
  3. NORVASC [Concomitant]

REACTIONS (2)
  - PARAESTHESIA [None]
  - SOMNOLENCE [None]
